FAERS Safety Report 17255774 (Version 2)
Quarter: 2020Q1

REPORT INFORMATION
  Report Type: Spontaneous
  Country: IT (occurrence: IT)
  Receive Date: 20200110
  Receipt Date: 20200219
  Transmission Date: 20200409
  Serious: Yes (Hospitalization)
  Sender: FDA-Public Use
  Company Number: IT-TEVA-2020-IT-1165826

PATIENT
  Age: 80 Year
  Sex: Male

DRUGS (2)
  1. ESCITALOPRAM OXALATE. [Suspect]
     Active Substance: ESCITALOPRAM OXALATE
     Indication: DEPRESSION
     Dosage: 8 ML
     Route: 048
  2. DELORAZEPAM [Suspect]
     Active Substance: DELORAZEPAM
     Indication: ANXIETY
     Dosage: 20 MG
     Route: 048

REACTIONS (2)
  - Overdose [Unknown]
  - Sopor [Unknown]

NARRATIVE: CASE EVENT DATE: 20190615
